FAERS Safety Report 8579723-9 (Version None)
Quarter: 2012Q3

REPORT INFORMATION
  Report Type: 
  Country: None (occurrence: None)
  Receive Date: 20120726
  Receipt Date: 20120717
  Transmission Date: 20120928
  Serious: No
  Sender: FDA-Public Use
  Company Number: 2007000739

PATIENT
  Age: 47 Year
  Sex: Male

DRUGS (3)
  1. CARBOPLATIN [Concomitant]
  2. GEMCITADINE (GEMCITADINE) [Concomitant]
  3. TARCEVA (ERLOTINIB HYDROCHLORIDE) TABLET [Suspect]
     Indication: LUNG ADENOCARCINOMA
     Dosage: 150 MG, UID/QD, ORAL
     Route: 048

REACTIONS (2)
  - CONDITION AGGRAVATED [None]
  - PLEURAL EFFUSION [None]
